FAERS Safety Report 18555455 (Version 12)
Quarter: 2024Q1

REPORT INFORMATION
  Report Type: Report from Study
  Country: US (occurrence: US)
  Receive Date: 20201127
  Receipt Date: 20240101
  Transmission Date: 20240410
  Serious: Yes (Death, Disabling, Other)
  Sender: FDA-Public Use
  Company Number: US-TAKEDA-2018TUS024105

PATIENT
  Age: 70 Year
  Sex: Female

DRUGS (6)
  1. VEDOLIZUMAB [Suspect]
     Active Substance: VEDOLIZUMAB
     Indication: Crohn^s disease
     Dosage: 300 MILLIGRAM
     Route: 042
  2. VEDOLIZUMAB [Suspect]
     Active Substance: VEDOLIZUMAB
     Dosage: 300 MILLIGRAM, Q4WEEKS
     Route: 042
     Dates: start: 20201009
  3. VEDOLIZUMAB [Suspect]
     Active Substance: VEDOLIZUMAB
     Dosage: 300 MILLIGRAM, Q4WEEKS
     Route: 042
     Dates: end: 20230227
  4. VEDOLIZUMAB [Suspect]
     Active Substance: VEDOLIZUMAB
     Dosage: 300 MILLIGRAM
     Route: 042
  5. VEDOLIZUMAB [Suspect]
     Active Substance: VEDOLIZUMAB
     Dosage: 300 MILLIGRAM, Q4WEEKS
     Route: 042
  6. GABAPENTIN [Suspect]
     Active Substance: GABAPENTIN
     Indication: Product used for unknown indication
     Dosage: UNK
     Route: 065

REACTIONS (24)
  - Death [Fatal]
  - Crohn^s disease [Unknown]
  - Parkinson^s disease [Unknown]
  - Memory impairment [Unknown]
  - Progressive supranuclear palsy [Unknown]
  - Mental disorder [Unknown]
  - Insomnia [Unknown]
  - Stress [Unknown]
  - Inflammation [Unknown]
  - Arthropathy [Unknown]
  - Feeling abnormal [Unknown]
  - Dysgraphia [Unknown]
  - Decreased immune responsiveness [Unknown]
  - Abdominal pain upper [Unknown]
  - Pain [Unknown]
  - Diarrhoea [Unknown]
  - Slow speech [Unknown]
  - Chondropathy [Unknown]
  - Tendon disorder [Unknown]
  - Arthritis [Unknown]
  - Drug ineffective [Unknown]
  - Off label use [Unknown]
  - Urinary tract infection [Unknown]
  - Fatigue [Unknown]

NARRATIVE: CASE EVENT DATE: 20201009
